FAERS Safety Report 18941683 (Version 4)
Quarter: 2021Q2

REPORT INFORMATION
  Report Type: Report from Study
  Country: CN (occurrence: CN)
  Receive Date: 20210225
  Receipt Date: 20210624
  Transmission Date: 20210717
  Serious: Yes (Hospitalization)
  Sender: FDA-Public Use
  Company Number: CN-EISAI MEDICAL RESEARCH-EC-2021-088408

PATIENT
  Age: 74 Year
  Sex: Female
  Weight: 50.5 kg

DRUGS (8)
  1. LENVATINIB [Suspect]
     Active Substance: LENVATINIB
     Route: 048
     Dates: start: 20190611, end: 20190725
  2. LEFT THYROXINE SODIUM TABLETS [Concomitant]
     Indication: HYPOTHYROIDISM
     Route: 048
     Dates: start: 20200318
  3. LENVATINIB [Suspect]
     Active Substance: LENVATINIB
     Indication: THYROID CANCER
     Dosage: PLACEBO
     Route: 048
     Dates: start: 20180918, end: 20190503
  4. LENVATINIB [Suspect]
     Active Substance: LENVATINIB
     Route: 048
     Dates: start: 20190806, end: 20200218
  5. CALCIUM CARBONATE D3 CHEWABLE TABLETS [Concomitant]
     Indication: HYPOCALCAEMIA
     Route: 048
     Dates: start: 20190611
  6. CALCITRIOL SOFT TABLETS [Concomitant]
     Indication: HYPOCALCAEMIA
     Route: 048
  7. LENVATINIB [Suspect]
     Active Substance: LENVATINIB
     Route: 048
     Dates: start: 20190514, end: 20190528
  8. LENVATINIB [Suspect]
     Active Substance: LENVATINIB
     Route: 048
     Dates: start: 20200219, end: 20210218

REACTIONS (1)
  - Malignant pleural effusion [Not Recovered/Not Resolved]

NARRATIVE: CASE EVENT DATE: 20210216
